FAERS Safety Report 10087148 (Version 2)
Quarter: 2014Q2

REPORT INFORMATION
  Report Type: Spontaneous
  Country: JP (occurrence: JP)
  Receive Date: 20140418
  Receipt Date: 20140429
  Transmission Date: 20141212
  Serious: Yes (Hospitalization, Other)
  Sender: FDA-Public Use
  Company Number: JP-TAKEDA-2014TJP005088

PATIENT
  Age: 65 Year
  Sex: Male
  Weight: 71 kg

DRUGS (7)
  1. ACTOS TABLETS 30 [Suspect]
     Indication: DIABETES MELLITUS
     Dosage: 30 MG, QD
     Route: 048
     Dates: start: 20080212, end: 20140411
  2. LIPITOR [Concomitant]
     Dosage: 10 MG, QD
     Route: 048
  3. AMARYL [Concomitant]
     Dosage: 3 MG, TID
  4. AMLODIN [Concomitant]
     Dosage: 5 MG, QD
     Route: 048
  5. TANATRIL [Concomitant]
     Dosage: 2.5 MG, QD
     Route: 048
  6. JANUVIA [Concomitant]
     Dosage: 50 MG, QD
     Route: 048
     Dates: start: 20110217
  7. SEIBULE [Concomitant]
     Dosage: 50 MG, TID
     Route: 048
     Dates: start: 20100918

REACTIONS (1)
  - Transitional cell carcinoma [Recovered/Resolved]
